FAERS Safety Report 4616802-2 (Version None)
Quarter: 2005Q1

REPORT INFORMATION
  Report Type: 
  Country: None (occurrence: None)
  Receive Date: 20050321
  Receipt Date: 20050314
  Transmission Date: 20050727
  Serious: Yes (Death, Hospitalization)
  Sender: FDA-Public Use
  Company Number: 200510549GDS

PATIENT
  Age: 82 Year
  Sex: Male

DRUGS (8)
  1. ASPIRIN [Suspect]
     Dosage: 100 MG, TOTAL DAILY, ORAL
     Route: 048
     Dates: start: 20050207, end: 20050213
  2. HEPARIN [Suspect]
     Dosage: 10000 IU, TOTAL DAILY, INTRAVENOUS
     Route: 042
     Dates: start: 20050212, end: 20050213
  3. EPOETIN BETA [Concomitant]
  4. PANTOPRAZOLE SODIUM [Concomitant]
  5. CALCITRIOL [Concomitant]
  6. CETIRIZINE HCL [Concomitant]
  7. IPRATROPIUM BROMIDE [Concomitant]
  8. ALBUTEROL [Concomitant]

REACTIONS (9)
  - ANGINA PECTORIS [None]
  - CONFUSIONAL STATE [None]
  - CONTUSION [None]
  - FALL [None]
  - LUNG INFILTRATION [None]
  - NERVOUS SYSTEM DISORDER [None]
  - OPEN WOUND [None]
  - TRAUMATIC INTRACRANIAL HAEMORRHAGE [None]
  - UPPER RESPIRATORY TRACT INFECTION [None]
